FAERS Safety Report 9294416 (Version 1)
Quarter: 2013Q1

REPORT INFORMATION
  Report Type: Spontaneous
  Country: US (occurrence: US)
  Receive Date: 20121227
  Receipt Date: 20121227
  Transmission Date: 20140127
  Serious: Yes (Hospitalization)
  Sender: FDA-Public Use
  Company Number: PHEH2012US018776

PATIENT
  Sex: 0

DRUGS (2)
  1. CLOZARIL (CLOZAPINE) [Suspect]
  2. CLOZAPINE (CLOZAPINE) [Suspect]

REACTIONS (1)
  - Sepsis [None]
